FAERS Safety Report 12527833 (Version 6)
Quarter: 2019Q2

REPORT INFORMATION
  Report Type: Report from Study
  Country: CO (occurrence: CO)
  Receive Date: 20160705
  Receipt Date: 20190513
  Transmission Date: 20190711
  Serious: Yes (Hospitalization, Other)
  Sender: FDA-Public Use
  Company Number: CO-INCYTE CORPORATION-2016IN003913

PATIENT

DRUGS (7)
  1. JAKAVI [Suspect]
     Active Substance: RUXOLITINIB
     Indication: PRIMARY MYELOFIBROSIS
     Dosage: 20 MG, BID
     Route: 048
     Dates: start: 20160602
  2. JAKAVI [Suspect]
     Active Substance: RUXOLITINIB
     Dosage: 40 MG, QD
     Route: 048
     Dates: start: 20180415
  3. OMEPRAZOLE. [Concomitant]
     Active Substance: OMEPRAZOLE
     Indication: PRODUCT USED FOR UNKNOWN INDICATION
     Dosage: UNK
     Route: 065
  4. METOCLOPRAMIDE. [Concomitant]
     Active Substance: METOCLOPRAMIDE
     Indication: NAUSEA
     Dosage: 10 MG, TID
     Route: 048
  5. HYDROXYUREA. [Concomitant]
     Active Substance: HYDROXYUREA
     Indication: PRODUCT USED FOR UNKNOWN INDICATION
     Dosage: UNK
     Route: 065
  6. METOCLOPRAMIDE. [Concomitant]
     Active Substance: METOCLOPRAMIDE
     Indication: VOMITING
  7. ALLOPURINOL. [Concomitant]
     Active Substance: ALLOPURINOL
     Indication: PRODUCT USED FOR UNKNOWN INDICATION
     Dosage: 300 MG, QD
     Route: 048

REACTIONS (18)
  - Contusion [Unknown]
  - Abdominal pain upper [Recovering/Resolving]
  - Pyrexia [Unknown]
  - Pain [Unknown]
  - Pain in extremity [Recovering/Resolving]
  - Depression [Unknown]
  - Headache [Unknown]
  - White blood cell count decreased [Unknown]
  - Primary myelofibrosis [Unknown]
  - Inappropriate schedule of product administration [Unknown]
  - Recurrent cancer [Unknown]
  - Apathy [Unknown]
  - Mass [Unknown]
  - Nodule [Unknown]
  - Malaise [Unknown]
  - Chronic myeloid leukaemia [Unknown]
  - White blood cell count increased [Unknown]
  - Dizziness [Unknown]

NARRATIVE: CASE EVENT DATE: 20160616
